FAERS Safety Report 10157951 (Version 2)
Quarter: 2014Q2

REPORT INFORMATION
  Report Type: Spontaneous
  Country: US (occurrence: US)
  Receive Date: 20140507
  Receipt Date: 20140617
  Transmission Date: 20141212
  Serious: Yes (Other)
  Sender: FDA-Public Use
  Company Number: US-GLAXOSMITHKLINE-A1071376A

PATIENT
  Age: 63 Year
  Sex: Female

DRUGS (9)
  1. ADVAIR [Suspect]
     Indication: CHRONIC OBSTRUCTIVE PULMONARY DISEASE
     Dosage: 1PUFF TWICE PER DAY
     Route: 055
  2. PROTONIX [Concomitant]
  3. SINGULAIR [Concomitant]
  4. DIABETES MEDICATION [Concomitant]
  5. ANTI-CHOLESTEROL MEDICATION [Concomitant]
  6. ALBUTEROL [Concomitant]
  7. SPIRIVA [Concomitant]
  8. MAGIC MOUTHWASH [Concomitant]
  9. BIOTENE MOUTHWASH [Concomitant]

REACTIONS (5)
  - Suicidal ideation [Unknown]
  - Homicidal ideation [Unknown]
  - Lichen planus [Unknown]
  - Oral mucosal blistering [Unknown]
  - Product quality issue [Unknown]
